FAERS Safety Report 7066076-0 (Version None)
Quarter: 2010Q4

REPORT INFORMATION
  Report Type: 
  Country: None (occurrence: None)
  Receive Date: 20101027
  Receipt Date: 20100521
  Transmission Date: 20110411
  Serious: Yes (Hospitalization, Other)
  Sender: FDA-Public Use
  Company Number: HQWYE305021JUL04

PATIENT
  Sex: Female
  Weight: 92.16 kg

DRUGS (4)
  1. PREMPRO [Suspect]
     Indication: HORMONE REPLACEMENT THERAPY
  2. MEDROXYPROGESTERONE ACETATE [Suspect]
  3. EVISTA [Suspect]
  4. CONJUGATED ESTROGENS [Suspect]

REACTIONS (1)
  - MYOCARDIAL INFARCTION [None]
